FAERS Safety Report 14181392 (Version 3)
Quarter: 2019Q2

REPORT INFORMATION
  Report Type: Spontaneous
  Country: CA (occurrence: CA)
  Receive Date: 20171112
  Receipt Date: 20190529
  Transmission Date: 20190711
  Serious: Yes (Death, Hospitalization, Other)
  Sender: FDA-Public Use
  Company Number: CA-CONCORDIA PHARMACEUTICALS INC.-GSH201711-006346

PATIENT
  Age: 74 Year
  Sex: Female

DRUGS (3)
  1. HYDROXYCHLOROQUINE [Suspect]
     Active Substance: HYDROXYCHLOROQUINE
     Indication: SYSTEMIC LUPUS ERYTHEMATOSUS
     Dosage: (4 MG/KG)
     Route: 065
  2. IRBESARTAN. [Concomitant]
     Active Substance: IRBESARTAN
     Indication: HYPERTENSION
  3. NIFEDIPINE. [Concomitant]
     Active Substance: NIFEDIPINE

REACTIONS (17)
  - Cardiomyopathy [Recovering/Resolving]
  - Left ventricular hypertrophy [Unknown]
  - Dyspnoea exertional [Unknown]
  - Right ventricular hypertrophy [Unknown]
  - Brain natriuretic peptide abnormal [Unknown]
  - Atrial flutter [Unknown]
  - Diastolic dysfunction [Unknown]
  - Blood creatine phosphokinase increased [Unknown]
  - Skin hyperpigmentation [Unknown]
  - Right atrial dilatation [Unknown]
  - Atrial fibrillation [Unknown]
  - Oedema peripheral [Unknown]
  - Cardiac failure [Fatal]
  - Cardiac septal hypertrophy [Unknown]
  - Myocardial necrosis marker increased [Unknown]
  - Left atrial dilatation [Unknown]
  - Atrioventricular block [Unknown]
